FAERS Safety Report 6627677 (Version 2)
Quarter: 2015Q1

REPORT INFORMATION
  Report Type: Spontaneous
  Country: US (occurrence: US)
  Receive Date: 20080429
  Receipt Date: 20150119
  Transmission Date: 20150721
  Serious: No
  Sender: FDA-Public Use
  Company Number: US-ASTRAZENECA-2006UW24415

PATIENT
  Age: 71 Year
  Sex: Male
  Weight: 74.8 kg

DRUGS (5)
  1. XANAX [Concomitant]
     Active Substance: ALPRAZOLAM
  2. PHAZYME [Concomitant]
     Active Substance: DIMETHICONE 410
  3. NEXIUM [Suspect]
     Active Substance: ESOMEPRAZOLE MAGNESIUM
     Indication: DYSPEPSIA
     Route: 048
  4. NEXIUM [Suspect]
     Active Substance: ESOMEPRAZOLE MAGNESIUM
     Indication: CHEST PAIN
     Route: 048
  5. NEXIUM [Suspect]
     Active Substance: ESOMEPRAZOLE MAGNESIUM
     Indication: GASTROOESOPHAGEAL REFLUX DISEASE
     Route: 048

REACTIONS (13)
  - Infertility [Unknown]
  - Constipation [Unknown]
  - Sperm concentration abnormal [Unknown]
  - Semen analysis abnormal [Unknown]
  - Anxiety [Unknown]
  - Regurgitation [Unknown]
  - Dysgeusia [Unknown]
  - Diarrhoea [Unknown]
  - Drug ineffective [Unknown]
  - Haemoptysis [Unknown]
  - Abdominal rigidity [Unknown]
  - Weight decreased [Unknown]
  - Dry mouth [Unknown]

NARRATIVE: CASE EVENT DATE: 20061128
